FAERS Safety Report 9788190 (Version 1)
Quarter: 2013Q4

REPORT INFORMATION
  Report Type: Spontaneous
  Country: US (occurrence: None)
  Receive Date: 20131227
  Receipt Date: 20131227
  Transmission Date: 20140711
  Serious: Yes (Hospitalization)
  Sender: FDA-Public Use
  Company Number: None

PATIENT
  Age: 72 Year
  Sex: Female
  Weight: 115.5 kg

DRUGS (13)
  1. WARFARIN [Suspect]
     Indication: ATRIAL FIBRILLATION
     Route: 048
  2. ASA [Suspect]
     Indication: CORONARY ARTERY DISEASE
     Route: 048
  3. APAP [Concomitant]
  4. ALBUTEROL [Concomitant]
  5. VIT C [Concomitant]
  6. CA+D [Concomitant]
  7. FUROSEMIDE [Concomitant]
  8. METOPROLOL [Concomitant]
  9. MVI [Concomitant]
  10. KLOR-CON [Concomitant]
  11. SIMVASTATIN [Concomitant]
  12. TRAMADOL [Concomitant]
  13. VERAPAMIL [Concomitant]

REACTIONS (2)
  - Cerebral haemorrhage [None]
  - International normalised ratio increased [None]
